FAERS Safety Report 9517256 (Version 1)
Quarter: 2013Q3

REPORT INFORMATION
  Report Type: Report from Study
  Country: GB (occurrence: GB)
  Receive Date: 20130911
  Receipt Date: 20130911
  Transmission Date: 20140515
  Serious: Yes (Other)
  Sender: FDA-Public Use
  Company Number: GB-VERTEX PHARMACEUTICALS INC-2013-009478

PATIENT
  Sex: Female

DRUGS (3)
  1. VX-950 (TELAPREVIR) [Suspect]
     Indication: HEPATITIS C
     Dosage: 1125 MG, BID
     Dates: start: 20130709
  2. RIBAVIRIN [Concomitant]
     Indication: HEPATITIS C
     Dosage: UNK, BID
     Route: 048
     Dates: start: 20130709
  3. INTERFERON [Concomitant]
     Indication: HEPATITIS C
     Dosage: UNK, QW
     Route: 058
     Dates: start: 20130709

REACTIONS (4)
  - Lower respiratory tract infection [Not Recovered/Not Resolved]
  - Glossodynia [Not Recovered/Not Resolved]
  - Weight decreased [Not Recovered/Not Resolved]
  - Oropharyngeal pain [Unknown]
